FAERS Safety Report 7212078-0 (Version None)
Quarter: 2010Q4

REPORT INFORMATION
  Report Type: 
  Country: None (occurrence: None)
  Receive Date: 20101228
  Receipt Date: 20101216
  Transmission Date: 20110411
  Serious: Yes (Other)
  Sender: FDA-Public Use
  Company Number: 023896

PATIENT
  Sex: Female
  Weight: 61.2 kg

DRUGS (2)
  1. KEPPRA [Suspect]
     Indication: CONVULSION
     Dosage: 500 MG ORAL
     Route: 048
     Dates: start: 20100531, end: 20100624
  2. FLEXERIL [Concomitant]

REACTIONS (6)
  - CONVULSION [None]
  - FEELING ABNORMAL [None]
  - HALLUCINATION [None]
  - HOMICIDAL IDEATION [None]
  - NIGHTMARE [None]
  - PETIT MAL EPILEPSY [None]
